FAERS Safety Report 21330698 (Version 1)
Quarter: 2022Q3

REPORT INFORMATION
  Report Type: Spontaneous
  Country: US (occurrence: US)
  Receive Date: 20220913
  Receipt Date: 20220913
  Transmission Date: 20221026
  Serious: Yes (Other)
  Sender: FDA-Public Use
  Company Number: US-LUNDBECK-DKLU3052154

PATIENT
  Age: 1 Year
  Sex: Male

DRUGS (3)
  1. SABRIL [Suspect]
     Active Substance: VIGABATRIN
     Indication: Infantile spasms
     Route: 065
     Dates: start: 20211206
  2. SABRIL [Suspect]
     Active Substance: VIGABATRIN
     Route: 065
  3. SABRIL [Suspect]
     Active Substance: VIGABATRIN
     Route: 065

REACTIONS (2)
  - Infantile spasms [Unknown]
  - Condition aggravated [Unknown]
